FAERS Safety Report 21795339 (Version 2)
Quarter: 2022Q4

REPORT INFORMATION
  Report Type: Report from Study
  Country: US (occurrence: US)
  Receive Date: 20221229
  Receipt Date: 20221230
  Transmission Date: 20230113
  Serious: No
  Sender: FDA-Public Use
  Company Number: US-ABBVIE-4252219

PATIENT
  Sex: Female
  Weight: 92.986 kg

DRUGS (12)
  1. HUMIRA [Suspect]
     Active Substance: ADALIMUMAB
     Indication: Sarcoidosis
     Dosage: START DATE TEXT: TWO YEARS AGO
     Route: 058
     Dates: start: 20211227
  2. HUMIRA [Suspect]
     Active Substance: ADALIMUMAB
     Dosage: START DATE TEXT: SIX MONTHS OR MORE AGO
     Route: 058
     Dates: start: 2022
  3. POTASSIUM [Concomitant]
     Active Substance: POTASSIUM
     Indication: Renal disorder prophylaxis
  4. HYDROXYZINE [Concomitant]
     Active Substance: HYDROXYZINE HYDROCHLORIDE
     Indication: Product used for unknown indication
  5. DULOXETINE [Concomitant]
     Active Substance: DULOXETINE
     Indication: Product used for unknown indication
  6. PANTOPRAZOLE [Concomitant]
     Active Substance: PANTOPRAZOLE
     Indication: Gastrooesophageal reflux disease
  7. FOLIC ACID [Concomitant]
     Active Substance: FOLIC ACID
     Indication: Eye disorder
  8. BUTALBITAL [Concomitant]
     Active Substance: BUTALBITAL
     Indication: Migraine
  9. METOPROLOL [Concomitant]
     Active Substance: METOPROLOL
     Indication: Hypertension
  10. ATORVASTATIN [Suspect]
     Active Substance: ATORVASTATIN
     Indication: Blood cholesterol increased
     Route: 065
     Dates: start: 2022, end: 2022
  11. METHOTREXATE [Concomitant]
     Active Substance: METHOTREXATE
     Indication: Eye disorder
  12. LOSARTAN [Concomitant]
     Active Substance: LOSARTAN
     Indication: Hypertension

REACTIONS (8)
  - Eye inflammation [Not Recovered/Not Resolved]
  - Adverse drug reaction [Unknown]
  - Therapeutic product effect incomplete [Unknown]
  - Pruritus [Unknown]
  - Headache [Unknown]
  - White blood cell count increased [Unknown]
  - Blood cholesterol increased [Unknown]
  - Off label use [Unknown]

NARRATIVE: CASE EVENT DATE: 20220101
